FAERS Safety Report 8245997-7 (Version None)
Quarter: 2012Q1

REPORT INFORMATION
  Report Type: 
  Country: None (occurrence: None)
  Receive Date: 20120330
  Receipt Date: 20120321
  Transmission Date: 20120608
  Serious: No
  Sender: FDA-Public Use
  Company Number: US-PFIZER INC-2012074460

PATIENT
  Sex: Female
  Weight: 110 kg

DRUGS (4)
  1. COREG [Concomitant]
     Indication: HYPERTENSION
     Dosage: ^0.25MG^, 2X/DAY
  2. LYRICA [Suspect]
     Dosage: 75MG DAILY
     Dates: start: 20120101
  3. LYRICA [Suspect]
     Indication: NERVE INJURY
     Dosage: 75 MG, 2X/DAY
     Dates: start: 20100101, end: 20100101
  4. LISINOPRIL [Concomitant]
     Indication: HYPERTENSION
     Dosage: 5 MG, 2X/DAY

REACTIONS (5)
  - INFLUENZA LIKE ILLNESS [None]
  - METABOLIC DISORDER [None]
  - ARTHRALGIA [None]
  - DYSPNOEA [None]
  - PAIN [None]
